FAERS Safety Report 19966274 (Version 2)
Quarter: 2021Q4

REPORT INFORMATION
  Report Type: Other
  Country: US (occurrence: US)
  Receive Date: 20211019
  Receipt Date: 20211102
  Transmission Date: 20220303
  Serious: Yes (Other)
  Sender: FDA-Public Use
  Company Number: US-COVIS PHARMA GMBH-2021COV01385

PATIENT
  Age: 27 Year
  Sex: Female
  Weight: 93.978 kg

DRUGS (3)
  1. MAKENA [Suspect]
     Active Substance: HYDROXYPROGESTERONE CAPROATE
     Indication: Premature delivery
     Route: 058
     Dates: start: 20210202, end: 20210601
  2. Prenatal gummies [Concomitant]
     Indication: Product used for unknown indication
     Route: 048
     Dates: start: 20210202
  3. norethindrone (Micronor) [Concomitant]
     Indication: Product used for unknown indication
     Route: 048
     Dates: start: 20210726

REACTIONS (2)
  - Induced labour [Recovered/Resolved]
  - Premature labour [Recovered/Resolved]

NARRATIVE: CASE EVENT DATE: 20210518
